FAERS Safety Report 15617827 (Version 2)
Quarter: 2018Q4

REPORT INFORMATION
  Report Type: Report from Study
  Country: UG (occurrence: UG)
  Receive Date: 20181114
  Receipt Date: 20181226
  Transmission Date: 20190205
  Serious: Yes (Congenital Anomaly, Other)
  Sender: FDA-Public Use
  Company Number: UG-MYLANLABS-2018M1086680

PATIENT
  Sex: Male
  Weight: 3 kg

DRUGS (3)
  1. EFAVIRENZ/LAMIVUDINE/TENOFOVIR DISOPROXIL FUMARATE TABLETS [Suspect]
     Active Substance: EFAVIRENZ\LAMIVUDINE\TENOFOVIR DISOPROXIL FUMARATE
     Indication: HIV INFECTION
     Dosage: 1 DF, UNK
     Route: 064
     Dates: start: 20180409
  2. FOLATE [Suspect]
     Active Substance: FOLATE SODIUM
     Indication: PRODUCT USED FOR UNKNOWN INDICATION
     Dosage: UNK
     Route: 064
  3. TRIMETHOPRIM SULFAMETHOXAZOLE [Suspect]
     Active Substance: SULFAMETHOXAZOLE\TRIMETHOPRIM
     Indication: PRODUCT USED FOR UNKNOWN INDICATION
     Dosage: UNK
     Route: 064

REACTIONS (5)
  - Conjunctivitis bacterial [Unknown]
  - Birth mark [Unknown]
  - Foetal exposure during pregnancy [Recovered/Resolved]
  - Congenital umbilical hernia [Unknown]
  - Sepsis neonatal [Unknown]
